FAERS Safety Report 10343493 (Version 1)
Quarter: 2014Q3

REPORT INFORMATION
  Report Type: Spontaneous
  Country: US (occurrence: US)
  Receive Date: 20140725
  Receipt Date: 20140725
  Transmission Date: 20150326
  Serious: No
  Sender: FDA-Public Use
  Company Number: US-009507513-1407USA011212

PATIENT
  Sex: Male

DRUGS (4)
  1. VICTOZA [Suspect]
     Active Substance: LIRAGLUTIDE
     Dosage: 1.2 MG, UNK
  2. LANTUS [Suspect]
     Active Substance: INSULIN GLARGINE
     Dosage: 38 UNITS
  3. JANUVIA [Suspect]
     Active Substance: SITAGLIPTIN PHOSPHATE
     Dosage: UNK UNK, QPM
     Route: 048
  4. NOVOLOG [Suspect]
     Active Substance: INSULIN ASPART
     Dosage: 19 UNITS

REACTIONS (3)
  - Constipation [Unknown]
  - Blood glucose decreased [Unknown]
  - Blood glucose increased [Unknown]
